FAERS Safety Report 19514125 (Version 6)
Quarter: 2021Q4

REPORT INFORMATION
  Report Type: Report from Study
  Country: IE (occurrence: IE)
  Receive Date: 20210709
  Receipt Date: 20211005
  Transmission Date: 20220304
  Serious: Yes (Life-Threatening, Hospitalization, Other)
  Sender: FDA-Public Use
  Company Number: IE-JNJFOC-20210715747

PATIENT
  Age: 33 Year
  Sex: Female

DRUGS (32)
  1. SIMPONI [Suspect]
     Active Substance: GOLIMUMAB
     Indication: Colitis ulcerative
     Route: 058
     Dates: start: 20191007
  2. AZATHIOPRINE [Suspect]
     Active Substance: AZATHIOPRINE
     Route: 065
     Dates: start: 20191007, end: 20200420
  3. MESALAMINE [Concomitant]
     Active Substance: MESALAMINE
     Dates: start: 20190919, end: 20191118
  4. MESALAMINE [Concomitant]
     Active Substance: MESALAMINE
     Dates: start: 20200109
  5. PREDNISONE [Concomitant]
     Active Substance: PREDNISONE
     Dates: start: 20191104
  6. INNOHEP [Concomitant]
     Active Substance: TINZAPARIN SODIUM
     Indication: Thrombosis prophylaxis
     Dates: start: 2019, end: 20191118
  7. INNOHEP [Concomitant]
     Active Substance: TINZAPARIN SODIUM
     Dates: start: 2021
  8. ERGOCALCIFEROL [Concomitant]
     Active Substance: ERGOCALCIFEROL
     Indication: Vitamin D deficiency
     Dates: start: 20190919
  9. ASACOL [Concomitant]
     Active Substance: MESALAMINE
     Dates: start: 20200110, end: 20200702
  10. ASACOL [Concomitant]
     Active Substance: MESALAMINE
     Dates: start: 20200703
  11. ASACOL [Concomitant]
     Active Substance: MESALAMINE
     Dates: start: 20210417
  12. HYDROCORTISONE [Concomitant]
     Active Substance: HYDROCORTISONE
     Dates: start: 20191212, end: 20200129
  13. FERROUS GLUCONATE [Concomitant]
     Active Substance: FERROUS GLUCONATE
     Indication: Iron deficiency
     Dates: start: 20200210, end: 202005
  14. FERROUS GLUCONATE [Concomitant]
     Active Substance: FERROUS GLUCONATE
     Dates: start: 202005
  15. MESALAMINE [Concomitant]
     Active Substance: MESALAMINE
     Dates: start: 20201001, end: 202012
  16. MESALAMINE [Concomitant]
     Active Substance: MESALAMINE
     Dates: start: 202012
  17. MESALAMINE [Concomitant]
     Active Substance: MESALAMINE
     Dates: start: 20191118
  18. CEFUROXIME [Concomitant]
     Active Substance: CEFUROXIME
     Indication: Tonsillitis
     Dates: start: 20200928, end: 202010
  19. CEFUROXIME [Concomitant]
     Active Substance: CEFUROXIME
     Indication: Pyelonephritis
     Dates: start: 20210428, end: 20210430
  20. CEFUROXIME [Concomitant]
     Active Substance: CEFUROXIME
     Dates: start: 20210715, end: 20210721
  21. ENOXAPARIN SODIUM [Concomitant]
     Active Substance: ENOXAPARIN SODIUM
     Indication: Cerebral venous sinus thrombosis
     Dates: start: 202002
  22. ENOXAPARIN SODIUM [Concomitant]
     Active Substance: ENOXAPARIN SODIUM
     Dates: start: 202102
  23. FLOATIN [Concomitant]
     Indication: Pregnancy
     Dates: start: 202102
  24. IRON [Concomitant]
     Active Substance: IRON
     Indication: Pregnancy
     Dates: start: 202102
  25. FOLIC ACID\IRON\MINERALS\VITAMINS [Concomitant]
     Active Substance: FOLIC ACID\IRON\MINERALS\VITAMINS
     Dates: start: 2021
  26. MAGNESIUM [Concomitant]
     Active Substance: MAGNESIUM
     Dates: start: 2021
  27. IRON [Concomitant]
     Active Substance: IRON
     Indication: Pregnancy
     Dates: start: 202102
  28. COTRIM [Concomitant]
     Active Substance: SULFAMETHOXAZOLE\TRIMETHOPRIM
     Indication: Infection prophylaxis
     Dates: start: 20191014, end: 20191104
  29. AMINOSALICYLIC ACID [Concomitant]
     Active Substance: AMINOSALICYLIC ACID
     Dates: start: 20191118, end: 202006
  30. AMINOSALICYLIC ACID [Concomitant]
     Active Substance: AMINOSALICYLIC ACID
     Dates: start: 20210417
  31. ASACOL [Concomitant]
     Active Substance: MESALAMINE
     Dates: start: 20210416
  32. CANIFUG CREMOL [Concomitant]
     Indication: Vulvovaginal candidiasis
     Dates: start: 20210719, end: 20210724

REACTIONS (3)
  - Pyelonephritis [Recovered/Resolved]
  - Nephrolithiasis [Recovered/Resolved]
  - Leiomyoma [Recovered/Resolved]

NARRATIVE: CASE EVENT DATE: 20210428
